FAERS Safety Report 7940763-1 (Version None)
Quarter: 2011Q4

REPORT INFORMATION
  Report Type: 
  Country: None (occurrence: None)
  Receive Date: 20111128
  Receipt Date: 20111122
  Transmission Date: 20120403
  Serious: Yes (Death)
  Sender: FDA-Public Use
  Company Number: JP-PFIZER INC-2011287376

PATIENT
  Age: 64 Year
  Sex: Male
  Weight: 54.8 kg

DRUGS (7)
  1. MOBIC [Concomitant]
     Dosage: 10 MG, 1X/DAY
     Route: 048
     Dates: start: 20110820
  2. CHLOR-TRIMETON [Concomitant]
     Indication: PROPHYLAXIS
     Dosage: 10 MG, UNK
     Route: 042
  3. FAMOTIDINE [Concomitant]
     Indication: PROPHYLAXIS
     Dosage: 20 MG, 1X/DAY
     Route: 042
  4. TEMSIROLIMUS [Suspect]
     Indication: RENAL CELL CARCINOMA
     Dosage: 10 MG, UNK
     Route: 042
     Dates: start: 20110825
  5. GASMOTIN [Concomitant]
     Dosage: 5 MG, 3X/DAY
     Route: 048
     Dates: start: 20110820
  6. HYDROCORTISONE SODIUM SUCCINATE [Concomitant]
     Indication: PROPHYLAXIS
     Dosage: 200 MG, 1X/DAY
     Route: 042
  7. MAGMITT [Concomitant]
     Dosage: 660 MG, 3X/DAY
     Route: 048
     Dates: start: 20110820

REACTIONS (1)
  - DEATH [None]
